FAERS Safety Report 8964613 (Version 1)
Quarter: 2012Q4

REPORT INFORMATION
  Report Type: 
  Country: US (occurrence: US)
  Receive Date: 20121214
  Receipt Date: 20121214
  Transmission Date: 20130627
  Serious: Yes (Other)
  Sender: FDA-Public Use
  Company Number: US-CELGENEUS-163-20785-12120754

PATIENT
  Sex: Female

DRUGS (2)
  1. THALOMID [Suspect]
     Indication: MULTIPLE MYELOMA
     Dosage: 200 Milligram
     Route: 048
     Dates: start: 201109
  2. THALOMID [Suspect]
     Dosage: 50 Milligram
     Route: 048
     Dates: start: 201206

REACTIONS (1)
  - Premature menopause [Unknown]
